FAERS Safety Report 10479904 (Version 1)
Quarter: 2014Q3

REPORT INFORMATION
  Report Type: Spontaneous
  Country: US (occurrence: None)
  Receive Date: 20140926
  Receipt Date: 20140926
  Transmission Date: 20150326
  Serious: No
  Sender: FDA-Public Use
  Company Number: None

PATIENT
  Age: 38 Year
  Sex: Female
  Weight: 92.53 kg

DRUGS (1)
  1. VENLAFAXINE [Suspect]
     Active Substance: VENLAFAXINE HYDROCHLORIDE
     Indication: MAJOR DEPRESSION
     Dosage: 1 PILL, ONCE DAILY, TAKEN BY MOUTH
     Route: 048
     Dates: start: 20130901, end: 20140923

REACTIONS (5)
  - Drug withdrawal syndrome [None]
  - Insomnia [None]
  - Nightmare [None]
  - Hyperhidrosis [None]
  - Restless legs syndrome [None]

NARRATIVE: CASE EVENT DATE: 20140924
